FAERS Safety Report 8587147-3 (Version None)
Quarter: 2012Q3

REPORT INFORMATION
  Report Type: 
  Country: None (occurrence: None)
  Receive Date: 20120810
  Receipt Date: 20120730
  Transmission Date: 20120928
  Serious: No
  Sender: FDA-Public Use
  Company Number: US-ASTRAZENECA-2012SE53893

PATIENT
  Age: 30 Year
  Sex: Female
  Weight: 62.6 kg

DRUGS (2)
  1. SEROQUEL [Suspect]
     Indication: MOOD ALTERED
     Route: 048
  2. SEROQUEL [Suspect]
     Indication: DEPRESSION
     Route: 048

REACTIONS (4)
  - DRUG DOSE OMISSION [None]
  - INFLUENZA [None]
  - INSOMNIA [None]
  - OFF LABEL USE [None]
